FAERS Safety Report 7573089-9 (Version None)
Quarter: 2011Q2

REPORT INFORMATION
  Report Type: 
  Country: None (occurrence: None)
  Receive Date: 20110627
  Receipt Date: 20110620
  Transmission Date: 20111010
  Serious: Yes (Death)
  Sender: FDA-Public Use
  Company Number: US-CELGENEUS-163-21880-11062684

PATIENT
  Sex: Male

DRUGS (10)
  1. KLOR-CON [Concomitant]
     Dosage: 20 MILLIEQUIVALENTS
     Route: 048
     Dates: start: 20110216
  2. OMEPRAZOLE [Concomitant]
     Dosage: 20 MILLIGRAM
     Route: 048
     Dates: start: 20110216
  3. METOPROLOL TARTRATE [Concomitant]
     Dosage: 25 MILLIGRAM
     Route: 048
     Dates: start: 20110216
  4. COLACE [Concomitant]
     Dosage: 100 MILLIGRAM
     Route: 048
     Dates: start: 20110216
  5. REVLIMID [Suspect]
     Dosage: 5 MILLIGRAM
     Route: 048
     Dates: start: 20110218
  6. SYNTHROID [Concomitant]
     Dosage: 88 MICROGRAM
     Route: 048
     Dates: start: 20110216
  7. FUROSEMIDE [Concomitant]
     Dosage: 20 MILLIGRAM
     Route: 048
     Dates: start: 20110216
  8. ASPIRIN [Concomitant]
     Dosage: 81 MILLIGRAM
     Route: 048
     Dates: start: 20110216
  9. CALTRATE + D [Concomitant]
     Dosage: 1 TABLET
     Route: 048
     Dates: start: 20110216
  10. ASCORBIC ACID [Concomitant]
     Dosage: 1000 MILLIGRAM
     Route: 048
     Dates: start: 20110216

REACTIONS (3)
  - INJURY [None]
  - SKULL FRACTURE [None]
  - HAEMORRHAGE [None]
